FAERS Safety Report 9371004 (Version 1)
Quarter: 2013Q2

REPORT INFORMATION
  Report Type: Spontaneous
  Country: US (occurrence: US)
  Receive Date: 20130627
  Receipt Date: 20130627
  Transmission Date: 20140414
  Serious: No
  Sender: FDA-Public Use
  Company Number: US-009507513-1306USA010361

PATIENT
  Sex: 0

DRUGS (2)
  1. COZAAR [Suspect]
     Route: 048
  2. EXFORGE [Concomitant]

REACTIONS (2)
  - Drug ineffective [Unknown]
  - Hypertension [Not Recovered/Not Resolved]
